FAERS Safety Report 6172592-6 (Version None)
Quarter: 2009Q2

REPORT INFORMATION
  Report Type: 
  Country: None (occurrence: None)
  Receive Date: 20090428
  Receipt Date: 20090413
  Transmission Date: 20091009
  Serious: Yes (Death, Other)
  Sender: FDA-Public Use
  Company Number: APP200801160

PATIENT
  Age: 82 Year
  Sex: Female
  Weight: 75.7053 kg

DRUGS (29)
  1. MIDAZOLAM HYDROCHLORIDE [Suspect]
     Indication: ENDOTRACHEAL INTUBATION
     Dosage: INTRAVENOUS
     Route: 042
     Dates: start: 20081002, end: 20081002
  2. ETOMIDATE [Suspect]
     Indication: ENDOTRACHEAL INTUBATION
     Dosage: INTRAVENOUS
     Route: 042
     Dates: start: 20081002, end: 20081002
  3. BLINDED THERAPY [Suspect]
     Indication: PNEUMONIA
     Dosage: FREQUENCY BID, INTRAVENOUS
     Route: 042
     Dates: start: 20081002, end: 20081008
  4. COMBIVENT [Concomitant]
  5. FERROUS SULFATE TAB [Concomitant]
  6. POLYCARBOPHIL (POLYCARBOPHIL) [Concomitant]
  7. ISOSORBIDE MONONIRATE [Concomitant]
  8. ACETYLSALICYLIC ACID (ACETYLSALICYLIC ACID) [Concomitant]
  9. ENOXAPARIN SODIUM [Concomitant]
  10. MAG-OX (MAGNESIUM OXIDE) [Concomitant]
  11. GUAIFENESIN [Concomitant]
  12. NOVOLIN [Concomitant]
  13. PANTOPRAZOLE SODIUM [Concomitant]
  14. SENNA [Concomitant]
  15. MONTELUKAST SODIUM [Concomitant]
  16. METHYLPREDNISOLONE ACETATE [Concomitant]
  17. SOTALOL HCL [Concomitant]
  18. SIMVASTATIN [Concomitant]
  19. AVELOX [Concomitant]
  20. VANCOMYCIN [Concomitant]
  21. CALCIUM GLUCONATE [Concomitant]
  22. FENTANYL-100 [Concomitant]
  23. KAYEXALATE [Concomitant]
  24. PREVACID [Concomitant]
  25. DEXTROSE [Concomitant]
  26. PERIDEX (DEXAMETHASONE) [Concomitant]
  27. HYDRALAZINE HCL [Concomitant]
  28. LANTUS [Concomitant]
  29. ZOSYN [Concomitant]

REACTIONS (8)
  - ANAEMIA [None]
  - CARDIO-RESPIRATORY ARREST [None]
  - CHOLECYSTITIS [None]
  - HEPATITIS TOXIC [None]
  - HYPERKALAEMIA [None]
  - HYPERTENSION [None]
  - ISCHAEMIC HEPATITIS [None]
  - TYPE 1 DIABETES MELLITUS [None]
